FAERS Safety Report 6478039-4 (Version None)
Quarter: 2009Q4

REPORT INFORMATION
  Report Type: 
  Country: None (occurrence: None)
  Receive Date: 20091207
  Receipt Date: 20091124
  Transmission Date: 20100525
  Serious: Yes (Death)
  Sender: FDA-Public Use
  Company Number: US-ASTRAZENECA-2009SE29826

PATIENT

DRUGS (2)
  1. DIPRIVAN [Suspect]
     Dosage: ONCE
     Route: 042
     Dates: start: 20091103, end: 20091103
  2. SEVOFLURANE [Suspect]
     Dosage: ONCE
     Dates: start: 20091103, end: 20091103

REACTIONS (1)
  - HYPERTHERMIA MALIGNANT [None]
